FAERS Safety Report 25585824 (Version 1)
Quarter: 2025Q3

REPORT INFORMATION
  Report Type: Spontaneous
  Country: CA (occurrence: CA)
  Receive Date: 20250721
  Receipt Date: 20250721
  Transmission Date: 20251020
  Serious: Yes (Hospitalization, Other)
  Sender: MYLAN
  Company Number: CA-MYLANLABS-2025M1059650

PATIENT
  Age: 47 Year
  Sex: Male

DRUGS (40)
  1. VALPROIC ACID [Suspect]
     Active Substance: VALPROIC ACID
     Indication: Seizure prophylaxis
     Dosage: 1500 MILLIGRAM, QD  (1 EVERY 24 HOURS)
  2. VALPROIC ACID [Suspect]
     Active Substance: VALPROIC ACID
     Dosage: 1500 MILLIGRAM, QD  (1 EVERY 24 HOURS)
     Route: 048
  3. VALPROIC ACID [Suspect]
     Active Substance: VALPROIC ACID
     Dosage: 1500 MILLIGRAM, QD  (1 EVERY 24 HOURS)
     Route: 048
  4. VALPROIC ACID [Suspect]
     Active Substance: VALPROIC ACID
     Dosage: 1500 MILLIGRAM, QD  (1 EVERY 24 HOURS)
  5. CLOZAPINE [Suspect]
     Active Substance: CLOZAPINE
     Indication: Schizophrenia
  6. CLOZAPINE [Suspect]
     Active Substance: CLOZAPINE
  7. CLOZAPINE [Suspect]
     Active Substance: CLOZAPINE
     Route: 048
  8. CLOZAPINE [Suspect]
     Active Substance: CLOZAPINE
     Route: 048
  9. CLOZAPINE [Suspect]
     Active Substance: CLOZAPINE
  10. CLOZAPINE [Suspect]
     Active Substance: CLOZAPINE
  11. CLOZAPINE [Suspect]
     Active Substance: CLOZAPINE
     Route: 048
  12. CLOZAPINE [Suspect]
     Active Substance: CLOZAPINE
     Route: 048
  13. CLOZAPINE [Suspect]
     Active Substance: CLOZAPINE
  14. CLOZAPINE [Suspect]
     Active Substance: CLOZAPINE
     Route: 048
  15. CLOZAPINE [Suspect]
     Active Substance: CLOZAPINE
  16. CLOZAPINE [Suspect]
     Active Substance: CLOZAPINE
     Route: 048
  17. CLOZAPINE [Suspect]
     Active Substance: CLOZAPINE
     Indication: Schizophrenia
  18. CLOZAPINE [Suspect]
     Active Substance: CLOZAPINE
     Route: 048
  19. CLOZAPINE [Suspect]
     Active Substance: CLOZAPINE
     Route: 048
  20. CLOZAPINE [Suspect]
     Active Substance: CLOZAPINE
  21. ATROPINE [Concomitant]
     Active Substance: ATROPINE
     Indication: Salivary hypersecretion
  22. ATROPINE [Concomitant]
     Active Substance: ATROPINE
     Route: 060
  23. ATROPINE [Concomitant]
     Active Substance: ATROPINE
     Route: 060
  24. ATROPINE [Concomitant]
     Active Substance: ATROPINE
  25. PANTOPRAZOLE [Concomitant]
     Active Substance: PANTOPRAZOLE
     Indication: Gastrooesophageal reflux disease
  26. PANTOPRAZOLE [Concomitant]
     Active Substance: PANTOPRAZOLE
     Route: 065
  27. PANTOPRAZOLE [Concomitant]
     Active Substance: PANTOPRAZOLE
     Route: 065
  28. PANTOPRAZOLE [Concomitant]
     Active Substance: PANTOPRAZOLE
  29. PROPRANOLOL [Concomitant]
     Active Substance: PROPRANOLOL HYDROCHLORIDE
     Indication: Product used for unknown indication
     Dosage: 10 MILLIGRAM, BID (2 EVERY 1 DAYS)
  30. PROPRANOLOL [Concomitant]
     Active Substance: PROPRANOLOL HYDROCHLORIDE
     Dosage: 10 MILLIGRAM, BID (2 EVERY 1 DAYS)
     Route: 048
  31. PROPRANOLOL [Concomitant]
     Active Substance: PROPRANOLOL HYDROCHLORIDE
     Dosage: 10 MILLIGRAM, BID (2 EVERY 1 DAYS)
     Route: 048
  32. PROPRANOLOL [Concomitant]
     Active Substance: PROPRANOLOL HYDROCHLORIDE
     Dosage: 10 MILLIGRAM, BID (2 EVERY 1 DAYS)
  33. RAMIPRIL [Concomitant]
     Active Substance: RAMIPRIL
     Indication: Hypertension
  34. RAMIPRIL [Concomitant]
     Active Substance: RAMIPRIL
     Route: 065
  35. RAMIPRIL [Concomitant]
     Active Substance: RAMIPRIL
     Route: 065
  36. RAMIPRIL [Concomitant]
     Active Substance: RAMIPRIL
  37. ZUCLOPENTHIXOL DECANOATE [Concomitant]
     Active Substance: ZUCLOPENTHIXOL DECANOATE
     Indication: Schizophrenia
     Dosage: 400 MILLIGRAM, Q2W (1 EVERY 2 WEEKS)
  38. ZUCLOPENTHIXOL DECANOATE [Concomitant]
     Active Substance: ZUCLOPENTHIXOL DECANOATE
     Dosage: 400 MILLIGRAM, Q2W (1 EVERY 2 WEEKS)
     Route: 030
  39. ZUCLOPENTHIXOL DECANOATE [Concomitant]
     Active Substance: ZUCLOPENTHIXOL DECANOATE
     Dosage: 400 MILLIGRAM, Q2W (1 EVERY 2 WEEKS)
     Route: 030
  40. ZUCLOPENTHIXOL DECANOATE [Concomitant]
     Active Substance: ZUCLOPENTHIXOL DECANOATE
     Dosage: 400 MILLIGRAM, Q2W (1 EVERY 2 WEEKS)

REACTIONS (4)
  - Catatonia [Recovered/Resolved]
  - Drug withdrawal syndrome [Recovered/Resolved]
  - Salivary hypersecretion [Recovered/Resolved]
  - Serotonin syndrome [Recovered/Resolved]
